FAERS Safety Report 22676973 (Version 31)
Quarter: 2024Q3

REPORT INFORMATION
  Report Type: Report from Study
  Country: RU (occurrence: RU)
  Receive Date: 20230706
  Receipt Date: 20240717
  Transmission Date: 20241016
  Serious: Yes (Hospitalization, Other)
  Sender: NOVARTIS
  Company Number: RU-002147023-NVSC2023RU150394

PATIENT
  Age: 1 Year
  Sex: Male
  Weight: 12.1 kg

DRUGS (12)
  1. ZOLGENSMA [Suspect]
     Active Substance: ONASEMNOGENE ABEPARVOVEC-XIOI
     Indication: Neurodegenerative disorder
     Dosage: 68.8 ML, ONCE/SINGLE (SINGLE DOSE, FOR 1 HOUR)
     Route: 041
     Dates: start: 20230608, end: 20230608
  2. ZOLGENSMA [Suspect]
     Active Substance: ONASEMNOGENE ABEPARVOVEC-XIOI
     Indication: Spinal muscular atrophy
  3. ZOLGENSMA [Suspect]
     Active Substance: ONASEMNOGENE ABEPARVOVEC-XIOI
     Indication: Quadriparesis
  4. LEVOCARNITINE [Concomitant]
     Active Substance: LEVOCARNITINE
     Indication: Product used for unknown indication
     Dosage: 0.5 ML, BID (30 PERCENT, MORNING, EVENING)
     Route: 065
     Dates: start: 20230608, end: 20230620
  5. LEVOCARNITINE [Concomitant]
     Active Substance: LEVOCARNITINE
     Dosage: 100 ML (2.5 ML IN 0.9 PERCENT NACL)
     Route: 041
     Dates: start: 20230609, end: 20230620
  6. CINNARIZINE [Concomitant]
     Active Substance: CINNARIZINE
     Indication: Product used for unknown indication
     Dosage: 0.25 DOSAGE FORM BID (1/4 TABLET, 2X PER DAY (MORNING, EVENING))
     Route: 065
     Dates: start: 20230608, end: 20230620
  7. PREDNISOLONE [Concomitant]
     Active Substance: PREDNISOLONE
     Indication: Product used for unknown indication
     Dosage: 2.5 TABLETS
     Route: 065
     Dates: start: 20230608, end: 20230615
  8. PREDNISOLONE [Concomitant]
     Active Substance: PREDNISOLONE
     Dosage: 5 TABLETS
     Route: 065
     Dates: start: 20230615, end: 20230620
  9. POTASSIUM-MAGNESIUM-L-ASPARAGINATE [Concomitant]
     Indication: Product used for unknown indication
     Dosage: 1/4 TABLET, BID
     Route: 065
     Dates: start: 20230608, end: 20230620
  10. URSODIOL [Concomitant]
     Active Substance: URSODIOL
     Indication: Product used for unknown indication
     Dosage: 125 MG, QD
     Route: 065
     Dates: start: 20230615, end: 20230620
  11. OMEPRAZOLE [Concomitant]
     Active Substance: OMEPRAZOLE
     Indication: Product used for unknown indication
     Dosage: 5 MG, QD
     Route: 065
     Dates: start: 20230608, end: 20230620
  12. AZITHROMYCIN [Concomitant]
     Active Substance: AZITHROMYCIN
     Indication: Product used for unknown indication
     Dosage: 125 MG, QD
     Route: 065
     Dates: start: 20230611, end: 20230617

REACTIONS (17)
  - Blood test abnormal [Not Recovered/Not Resolved]
  - Cryptorchism [Recovered/Resolved]
  - Blood iron decreased [Recovering/Resolving]
  - White blood cell count decreased [Unknown]
  - Lymphocyte count decreased [Unknown]
  - Laboratory test abnormal [Unknown]
  - Eosinophil percentage increased [Unknown]
  - Alanine aminotransferase increased [Unknown]
  - Aspartate aminotransferase increased [Unknown]
  - Red blood cell sedimentation rate increased [Unknown]
  - Blood creatinine decreased [Unknown]
  - Activated partial thromboplastin time shortened [Unknown]
  - Monocyte percentage increased [Unknown]
  - Neutrophil count decreased [Unknown]
  - Body temperature fluctuation [Unknown]
  - Vomiting [Unknown]
  - Pharyngeal erythema [Unknown]

NARRATIVE: CASE EVENT DATE: 20230611
